FAERS Safety Report 9379308 (Version 1)
Quarter: 2013Q3

REPORT INFORMATION
  Report Type: Spontaneous
  Country: IE (occurrence: IE)
  Receive Date: 20130702
  Receipt Date: 20130702
  Transmission Date: 20140515
  Serious: Yes (Life-Threatening, Hospitalization, Other)
  Sender: FDA-Public Use
  Company Number: IE-PFIZER INC-2013193794

PATIENT
  Age: 67 Year
  Sex: Female

DRUGS (1)
  1. CHAMPIX [Suspect]
     Dosage: UNK

REACTIONS (3)
  - Hyponatraemia [Recovered/Resolved]
  - Convulsion [Recovered/Resolved]
  - Malaise [Recovered/Resolved]
